FAERS Safety Report 23286360 (Version 2)
Quarter: 2023Q4

REPORT INFORMATION
  Report Type: Report from Study
  Country: US (occurrence: US)
  Receive Date: 20231212
  Receipt Date: 20231228
  Transmission Date: 20240109
  Serious: Yes (Hospitalization, Other)
  Sender: FDA-Public Use
  Company Number: US-AMRYT PHARMACEUTICALS DAC-AEGR006794

PATIENT
  Sex: Male

DRUGS (8)
  1. OCTREOTIDE [Suspect]
     Active Substance: OCTREOTIDE
     Indication: Acromegaly
     Dosage: 20 MILLIGRAM
     Route: 048
  2. OCTREOTIDE [Suspect]
     Active Substance: OCTREOTIDE
     Indication: Gigantism
     Dosage: 40 MILLIGRAM
     Route: 048
  3. GLYCOPYRROLATE [Concomitant]
     Active Substance: GLYCOPYRROLATE
     Indication: Product used for unknown indication
  4. ZINC OXIDE [Concomitant]
     Active Substance: ZINC OXIDE
     Indication: Product used for unknown indication
  5. CHOLECALCIFEROL [Concomitant]
     Active Substance: CHOLECALCIFEROL
     Indication: Product used for unknown indication
  6. VITAMIN C [Concomitant]
     Active Substance: ASCORBIC ACID
     Indication: Product used for unknown indication
  7. MAGNESIUM [Concomitant]
     Active Substance: MAGNESIUM
     Indication: Product used for unknown indication
  8. CREATININE [Concomitant]
     Active Substance: CREATININE
     Indication: Product used for unknown indication

REACTIONS (1)
  - Pituitary tumour [Not Recovered/Not Resolved]
